FAERS Safety Report 8842905 (Version 1)
Quarter: 2012Q4

REPORT INFORMATION
  Report Type: 
  Country: US (occurrence: US)
  Receive Date: 20121016
  Receipt Date: 20121016
  Transmission Date: 20130627
  Serious: No
  Sender: FDA-Public Use
  Company Number: US-ASTRAZENECA-2012SE75688

PATIENT
  Age: 72 Year
  Sex: Female
  Weight: 54 kg

DRUGS (5)
  1. SYMBICORT [Suspect]
     Indication: CHRONIC OBSTRUCTIVE PULMONARY DISEASE
     Dosage: 160/4.5 MCG, 2 PUFFS, BID
     Route: 055
     Dates: start: 20120919
  2. VENTOLIN INHALER [Concomitant]
     Indication: CHRONIC OBSTRUCTIVE PULMONARY DISEASE
     Dosage: QID
     Route: 055
  3. ALBUTEROL NEBULIZED [Concomitant]
     Indication: CHRONIC OBSTRUCTIVE PULMONARY DISEASE
     Dosage: QID
     Route: 055
  4. IPRATROPIUM NEBULIZED [Concomitant]
     Indication: CHRONIC OBSTRUCTIVE PULMONARY DISEASE
     Dosage: PRN
     Route: 055
     Dates: start: 2010
  5. IPRATROPIUM NEBULIZED [Concomitant]
     Indication: CHRONIC OBSTRUCTIVE PULMONARY DISEASE
     Dosage: QID
     Route: 055

REACTIONS (2)
  - Dyspnoea [Unknown]
  - Drug dose omission [Unknown]
